FAERS Safety Report 6730985-X (Version None)
Quarter: 2010Q2

REPORT INFORMATION
  Report Type: 
  Country: None (occurrence: None)
  Receive Date: 20100514
  Receipt Date: 20100427
  Transmission Date: 20101027
  Serious: No
  Sender: FDA-Public Use
  Company Number: APP201000312

PATIENT
  Age: 53 Year
  Sex: Female

DRUGS (5)
  1. DEXAMETHASONE SODIUM PHOSPHATE [Suspect]
     Indication: MULTIPLE MYELOMA
  2. VINCRISTINE [Suspect]
     Indication: MULTIPLE MYELOMA
  3. ADRIAMYCIN PFS [Suspect]
     Indication: MULTIPLE MYELOMA
  4. MEPHALAN (MELPHALAN) [Suspect]
     Indication: BONE MARROW CONDITIONING REGIMEN
     Dosage: 200 MG/M2
  5. AREDIA [Concomitant]

REACTIONS (9)
  - BONE MARROW TRANSPLANT [None]
  - CANDIDIASIS [None]
  - DISEASE RECURRENCE [None]
  - HAEMODIALYSIS [None]
  - HYPOPHAGIA [None]
  - IMMUNOSUPPRESSION [None]
  - MUCOSAL INFLAMMATION [None]
  - ORAL HERPES [None]
  - RENAL FAILURE [None]
